FAERS Safety Report 6151868-2 (Version None)
Quarter: 2009Q2

REPORT INFORMATION
  Report Type: 
  Country: None (occurrence: None)
  Receive Date: 20090408
  Receipt Date: 20090330
  Transmission Date: 20091009
  Serious: Yes (Death, Life-Threatening, Other)
  Sender: FDA-Public Use
  Company Number: 2002000539-FJ

PATIENT
  Age: 15 Year
  Sex: Male

DRUGS (27)
  1. PROGRAF [Suspect]
     Indication: BONE MARROW TRANSPLANT
     Dosage: SEE IMAGE
     Route: 042
     Dates: start: 19991109, end: 19991109
  2. PROGRAF [Suspect]
     Indication: BONE MARROW TRANSPLANT
     Dosage: SEE IMAGE
     Route: 042
     Dates: start: 19991110, end: 19991124
  3. PROGRAF [Suspect]
     Indication: BONE MARROW TRANSPLANT
     Dosage: SEE IMAGE
     Route: 042
     Dates: start: 19991125, end: 19991125
  4. PROGRAF [Suspect]
     Indication: BONE MARROW TRANSPLANT
     Dosage: SEE IMAGE
     Route: 042
     Dates: start: 19991126, end: 19991126
  5. PROGRAF [Suspect]
     Indication: BONE MARROW TRANSPLANT
     Dosage: SEE IMAGE
     Route: 042
     Dates: start: 19991127, end: 19991210
  6. PROGRAF [Suspect]
     Indication: BONE MARROW TRANSPLANT
     Dosage: SEE IMAGE
     Route: 042
     Dates: start: 19991211, end: 19991214
  7. PROGRAF [Suspect]
     Indication: BONE MARROW TRANSPLANT
     Dosage: SEE IMAGE
     Route: 042
     Dates: start: 19991109, end: 19991219
  8. PROGRAF [Suspect]
     Indication: BONE MARROW TRANSPLANT
     Dosage: SEE IMAGE
     Route: 042
     Dates: start: 19991215, end: 19991219
  9. PREDNISOLONE [Suspect]
     Dosage: 80 MG, UNKNOWN/D; IV NOS
     Route: 042
     Dates: start: 19991108, end: 19991112
  10. PREDNISOLONE [Suspect]
     Dosage: 80 MG, UNKNOWN/D; IV NOS
     Route: 042
     Dates: start: 19991118, end: 19991219
  11. METHYLPREDNISOLONE [Suspect]
     Dosage: 1 MG, UNKNOWN/D; IV NOS
     Route: 042
     Dates: start: 19991112, end: 19991117
  12. METHYLPREDNISOLONE [Suspect]
     Dosage: 1 MG, UNKNOWN/D; IV NOS
     Route: 042
     Dates: start: 19991124, end: 19991125
  13. MEROPENEM TRIHYDRATE(MEROPENEM TRIHYDRATE) INJECTION [Suspect]
     Dosage: UNK, UNKNOWN/D; IV NOS
     Route: 042
     Dates: start: 19991206, end: 19991217
  14. SULFAMETHOXAZOLE W/TRIMETHOPRIM(SULFAMETHOXAZOLE, TRIMETHOPRIM)  FORMU [Suspect]
  15. ANTIBIOTICS () FORMULATION UNKNOWN [Suspect]
  16. CEFSULODIN SODIUM [Suspect]
     Dosage: UNK, UNKNOWN/D; IV NOS
     Route: 011
     Dates: start: 19991206, end: 19991217
  17. CYCLOSERINE [Suspect]
     Indication: BONE MARROW TRANSPLANT
     Dates: end: 19991108
  18. BUPRENORPHINE HYDROCHLORIDE [Concomitant]
  19. AMPHOTERICIN B [Concomitant]
  20. ACYCLOVIR [Concomitant]
  21. CEFTAZIDIME [Concomitant]
  22. CEFOPERAZONE SODIUM W/SULBACTAM (CEFOPERAZONE SODIUM, SULBACTAM) [Concomitant]
  23. CEFPIROME SULFATE (CEFPIROME SULFATE) [Concomitant]
  24. PANIPENEM (PANIPENEM) [Concomitant]
  25. DOPAMINE HCL [Concomitant]
  26. CYCLOPHOSPHAMIDE [Concomitant]
  27. BUSULFAN (BUSULFAN) [Concomitant]

REACTIONS (13)
  - BRONCHOPULMONARY ASPERGILLOSIS [None]
  - CLOSTRIDIUM DIFFICILE COLITIS [None]
  - DEHYDRATION [None]
  - ENGRAFT FAILURE [None]
  - GASTROINTESTINAL CANDIDIASIS [None]
  - GRAFT VERSUS HOST DISEASE [None]
  - HEPATIC FUNCTION ABNORMAL [None]
  - HYPERGLYCAEMIA [None]
  - HYPERNATRAEMIA [None]
  - HYPOALBUMINAEMIA [None]
  - JAUNDICE [None]
  - NEUTROPENIA [None]
  - RENAL FAILURE [None]
